FAERS Safety Report 10965822 (Version 1)
Quarter: 2015Q1

REPORT INFORMATION
  Report Type: Spontaneous
  Country: US (occurrence: US)
  Receive Date: 20150330
  Receipt Date: 20150330
  Transmission Date: 20150721
  Serious: No
  Sender: FDA-Public Use
  Company Number: US-009507513-1503USA010497

PATIENT
  Sex: Female

DRUGS (2)
  1. TEMODAR [Suspect]
     Active Substance: TEMOZOLOMIDE
     Indication: GLIOBLASTOMA MULTIFORME
     Dosage: 3 DF, QD, 100 MG/ 3 CAPSULES  DAILY
     Route: 048
     Dates: start: 201206, end: 201301
  2. TEMODAR [Suspect]
     Active Substance: TEMOZOLOMIDE
     Dosage: UNK
     Route: 048
     Dates: start: 201303

REACTIONS (2)
  - Drug dose omission [Unknown]
  - Disease progression [Unknown]

NARRATIVE: CASE EVENT DATE: 2013
